FAERS Safety Report 21936842 (Version 2)
Quarter: 2023Q1

REPORT INFORMATION
  Report Type: Spontaneous
  Country: US (occurrence: US)
  Receive Date: 20230201
  Receipt Date: 20230217
  Transmission Date: 20230417
  Serious: No
  Sender: FDA-Public Use
  Company Number: US-PFIZER INC-2019309870

PATIENT
  Age: 70 Year
  Sex: Female
  Weight: 77.56 kg

DRUGS (3)
  1. PREMARIN [Suspect]
     Active Substance: ESTROGENS, CONJUGATED
     Indication: Hormone replacement therapy
     Dosage: 0.45 MG, WEEKLY
     Route: 048
  2. PREMARIN [Suspect]
     Active Substance: ESTROGENS, CONJUGATED
     Dosage: 0.45 MG (TAKE ONCE DAILY BY MOUTH)
     Route: 048
  3. PREMARIN [Concomitant]
     Active Substance: ESTROGENS, CONJUGATED
     Indication: Hormone replacement therapy
     Dosage: 0.625 MG, 2X/WEEK (0.5 APPLICATOR FULL TWICE WEEKLY)
     Route: 067

REACTIONS (2)
  - Essential hypertension [Unknown]
  - Off label use [Unknown]
